FAERS Safety Report 6906698-8 (Version None)
Quarter: 2010Q3

REPORT INFORMATION
  Report Type: 
  Country: None (occurrence: None)
  Receive Date: 20100709
  Receipt Date: 20090225
  Transmission Date: 20110219
  Serious: Yes (Other)
  Sender: FDA-Public Use
  Company Number: 2008092981

PATIENT
  Age: 37 Year
  Sex: Female
  Weight: 72.6 kg

DRUGS (4)
  1. CHANTIX [Suspect]
     Dosage: 1 MG, 2X/DAY, ORAL
     Route: 048
     Dates: start: 20080226, end: 20080331
  2. VITAMIN D [Concomitant]
  3. FISH OIL (FISH OIL) [Concomitant]
  4. RANTIDINE (RANTIDINE) [Concomitant]

REACTIONS (7)
  - AGGRESSION [None]
  - ANGER [None]
  - DEPRESSION [None]
  - FEELING ABNORMAL [None]
  - INSOMNIA [None]
  - MOOD SWINGS [None]
  - SUICIDAL IDEATION [None]
